FAERS Safety Report 5436292-X (Version None)
Quarter: 2007Q3

REPORT INFORMATION
  Report Type: 
  Country: None (occurrence: None)
  Receive Date: 20070831
  Receipt Date: 20070830
  Transmission Date: 20080115
  Serious: Yes (Life-Threatening)
  Sender: FDA-Public Use
  Company Number: SK-BRISTOL-MYERS SQUIBB COMPANY-13881974

PATIENT
  Age: 14 Year
  Sex: Female

DRUGS (3)
  1. OXACILLIN SODIUM [Suspect]
     Indication: MENINGITIS
     Route: 042
  2. AMPICILLIN [Suspect]
  3. GENTAMICIN [Suspect]

REACTIONS (1)
  - CEREBRAL ARTERY THROMBOSIS [None]
